FAERS Safety Report 5466550-4 (Version None)
Quarter: 2007Q3

REPORT INFORMATION
  Report Type: 
  Country: None (occurrence: None)
  Receive Date: 20070924
  Receipt Date: 20070924
  Transmission Date: 20080115
  Serious: Yes (Hospitalization)
  Sender: FDA-Public Use
  Company Number: None

PATIENT
  Age: 29 Year
  Sex: Female
  Weight: 59.9 kg

DRUGS (6)
  1. FLEBOGAMMA [Suspect]
     Indication: MONONEUROPATHY MULTIPLEX
     Dosage: 25 G/DAILY FOR 5 DAYS IV
     Route: 042
     Dates: start: 20061130, end: 20061201
  2. FLEBOGAMMA [Suspect]
  3. FLEBOGAMMA [Suspect]
  4. GAVOPANTIN [Concomitant]
  5. OXYCODON [Concomitant]
  6. PERCOCET [Concomitant]

REACTIONS (1)
  - MENINGITIS ASEPTIC [None]
